FAERS Safety Report 4432346-5 (Version None)
Quarter: 2004Q3

REPORT INFORMATION
  Report Type: 
  Country: None (occurrence: None)
  Receive Date: 20040820
  Receipt Date: 20040730
  Transmission Date: 20050211
  Serious: Yes (Death, Other)
  Sender: FDA-Public Use
  Company Number: DE_040513688

PATIENT
  Age: 71 Year
  Sex: Male

DRUGS (1)
  1. GEMZAR [Suspect]
     Indication: PANCREATIC CARCINOMA
     Dosage: 100 MG/M2
     Dates: start: 20031001, end: 20040101

REACTIONS (7)
  - BLOOD CREATININE INCREASED [None]
  - MALIGNANT NEOPLASM PROGRESSION [None]
  - OEDEMA PERIPHERAL [None]
  - PANCREATIC CARCINOMA METASTATIC [None]
  - PERICARDIAL EFFUSION [None]
  - PERITONEAL CARCINOMA [None]
  - PLEURAL EFFUSION [None]
